FAERS Safety Report 5004920-9 (Version None)
Quarter: 2006Q1

REPORT INFORMATION
  Report Type: 
  Country: None (occurrence: None)
  Receive Date: 20060321
  Receipt Date: 20051128
  Transmission Date: 20060701
  Serious: No
  Sender: FDA-Public Use
  Company Number: YPA20050608

PATIENT
  Age: 57 Year
  Sex: Male

DRUGS (2)
  1. VESICARE [Suspect]
     Indication: POLLAKIURIA
     Dosage: 5 MG, UID/QD, ORAL
     Route: 048
     Dates: start: 20051118
  2. NORVASC/DEN/ (AMLODIPINE BESILATE) TABLET [Concomitant]
     Dates: start: 20051001

REACTIONS (1)
  - BLOOD PRESSURE INCREASED [None]
